FAERS Safety Report 5235330-7 (Version None)
Quarter: 2007Q1

REPORT INFORMATION
  Report Type: 
  Country: None (occurrence: None)
  Receive Date: 20070207
  Receipt Date: 20070207
  Transmission Date: 20070707
  Serious: Yes (Hospitalization)
  Sender: FDA-Public Use
  Company Number: None

PATIENT
  Age: 61 Year
  Sex: Male
  Weight: 88 kg

DRUGS (12)
  1. GLIPIZIDE [Suspect]
     Indication: DIABETES MELLITUS NON-INSULIN-DEPENDENT
     Dosage: 10 MG  QD  PO
     Route: 048
     Dates: start: 20041014, end: 20050520
  2. QUETIAPINE FUMARATE [Concomitant]
  3. HYDROXYZINE [Concomitant]
  4. AMITRIPTYLINE HCL [Concomitant]
  5. LISINOPRIL AND HYDROCHLOROTHIAZIDE [Concomitant]
  6. FLUNISOLIDE [Concomitant]
  7. NAPROXEN [Concomitant]
  8. CHLORPHENIRAMINE MALEATE [Concomitant]
  9. METHCARBAMOL [Concomitant]
  10. SIMVASTATIN [Concomitant]
  11. POTASSIUM CHLORIDE [Concomitant]
  12. PSEUDOEPHEDRINE HCL [Concomitant]

REACTIONS (7)
  - AGITATION [None]
  - ASTHENIA [None]
  - BLOOD GLUCOSE DECREASED [None]
  - CONFUSIONAL STATE [None]
  - HYPERHIDROSIS [None]
  - SCREAMING [None]
  - VISION BLURRED [None]
